FAERS Safety Report 9171002 (Version 1)
Quarter: 2013Q1

REPORT INFORMATION
  Report Type: Spontaneous
  Country: FR (occurrence: FR)
  Receive Date: 20130319
  Receipt Date: 20130319
  Transmission Date: 20140127
  Serious: Yes (Hospitalization)
  Sender: FDA-Public Use
  Company Number: FR-TEVA-387435ISR

PATIENT
  Age: 74 Year
  Sex: Female
  Weight: 53 kg

DRUGS (8)
  1. OTRASEL [Suspect]
     Indication: PARKINSON^S DISEASE
     Dosage: 5 MILLIGRAM DAILY;
     Route: 048
     Dates: start: 20130212
  2. OTRASEL [Interacting]
     Dosage: 5 MILLIGRAM DAILY;
     Route: 048
     Dates: start: 20130216, end: 20130219
  3. TOPALGIC [Interacting]
     Dosage: 150 MILLIGRAM DAILY; 50MG THREE TIMES A DAY
  4. LEVOTHYROX [Concomitant]
     Dosage: 25 MICROGRAM DAILY; 25MCG IN THE MORNING IN LONG-TERM TREATMENT
     Route: 048
  5. CRESTOR [Concomitant]
     Dosage: 5 MILLIGRAM DAILY;
  6. CETIRIZINE [Concomitant]
     Dosage: 10 MILLIGRAM DAILY;
  7. DOLIPRANE [Concomitant]
     Dosage: 3 GRAM DAILY;
  8. MODOPAR [Concomitant]
     Indication: PARKINSON^S DISEASE
     Dosage: 375 GRAM DAILY;

REACTIONS (7)
  - Epilepsy [Not Recovered/Not Resolved]
  - Dyskinesia [Not Recovered/Not Resolved]
  - Drug interaction [Not Recovered/Not Resolved]
  - Overdose [Unknown]
  - Off label use [Unknown]
  - Incorrect route of drug administration [None]
  - Head injury [None]
